FAERS Safety Report 8990873 (Version 1)
Quarter: 2012Q4

REPORT INFORMATION
  Report Type: Spontaneous
  Country: US (occurrence: None)
  Receive Date: 20121226
  Receipt Date: 20121226
  Transmission Date: 20130627
  Serious: Yes (Other)
  Sender: FDA-Public Use
  Company Number: None

PATIENT
  Age: 48 Year
  Sex: Female
  Weight: 52.62 kg

DRUGS (1)
  1. BOTOX 155 UNITS ALLERGAN [Suspect]
     Indication: CHRONIC MIGRAINE
     Dosage: 155 units 1x SQ/IM
     Dates: start: 20120802

REACTIONS (5)
  - Pain of skin [None]
  - Contusion [None]
  - Muscle spasms [None]
  - Discomfort [None]
  - Headache [None]
